FAERS Safety Report 8826009 (Version 6)
Quarter: 2013Q1

REPORT INFORMATION
  Report Type: Report from Study
  Country: JP (occurrence: JP)
  Receive Date: 20121005
  Receipt Date: 20130228
  Transmission Date: 20140127
  Serious: Yes (Death)
  Sender: FDA-Public Use
  Company Number: JP-PFIZER INC-2012242311

PATIENT
  Age: 46 Year
  Sex: Female
  Weight: 42 kg

DRUGS (6)
  1. XALKORI [Suspect]
     Indication: NON-SMALL CELL LUNG CANCER
     Dosage: 250 MG, 2X/DAY
     Route: 048
     Dates: start: 20120912, end: 20120915
  2. ROPION [Concomitant]
     Dosage: 50 MG, 3X/DAY
     Route: 042
     Dates: end: 20120915
  3. FAMOTIDINE [Concomitant]
     Indication: PROPHYLAXIS
     Dosage: 20 MG, 1X/DAY
     Route: 042
     Dates: end: 20120928
  4. PREDONINE [Concomitant]
     Dosage: 10 MG, 1X/DAY
     Route: 042
     Dates: start: 20120902, end: 20120911
  5. PREDONINE [Concomitant]
     Dosage: 5 MG, 1X/DAY
     Route: 042
     Dates: start: 20120912, end: 20120916
  6. FENTOS [Concomitant]
     Dosage: 3 MG, 1X/DAY
     Dates: end: 20120921

REACTIONS (3)
  - Lung disorder [Fatal]
  - Disease progression [Fatal]
  - Non-small cell lung cancer [Fatal]
